FAERS Safety Report 17484394 (Version 1)
Quarter: 2020Q1

REPORT INFORMATION
  Report Type: Spontaneous
  Country: US (occurrence: US)
  Receive Date: 20200302
  Receipt Date: 20200302
  Transmission Date: 20200409
  Serious: Yes (Other)
  Sender: FDA-Public Use
  Company Number: US-ALEMBIC PHARMACUETICALS LIMITED-2020SCAL000091

PATIENT

DRUGS (1)
  1. OLMESARTAN MEDOXIMIL [Suspect]
     Active Substance: OLMESARTAN MEDOXOMIL
     Indication: HYPERTENSION
     Dosage: UNK

REACTIONS (6)
  - Rash [Recovered/Resolved]
  - Lichenoid keratosis [Recovered/Resolved]
  - Subacute cutaneous lupus erythematosus [Recovered/Resolved]
  - Rash pruritic [Recovered/Resolved]
  - Rash erythematous [Recovered/Resolved]
  - Erythema annulare [Recovered/Resolved]
